FAERS Safety Report 4832180-8 (Version None)
Quarter: 2005Q4

REPORT INFORMATION
  Report Type: 
  Country: None (occurrence: None)
  Receive Date: 20051118
  Receipt Date: 20050830
  Transmission Date: 20060501
  Serious: Yes (Death)
  Sender: FDA-Public Use
  Company Number: US-MERCK-0508USA05006

PATIENT
  Age: 76 Year
  Sex: Female
  Weight: 75 kg

DRUGS (7)
  1. VIOXX [Suspect]
     Indication: ARTHRITIS
     Route: 048
     Dates: start: 20010118, end: 20011015
  2. ALBUTEROL [Concomitant]
     Indication: ASTHMA
     Route: 065
  3. FLOVENT [Concomitant]
     Indication: HYPERSENSITIVITY
     Route: 065
  4. NIFEDIPINE [Concomitant]
     Indication: ANGINA PECTORIS
     Route: 065
     Dates: start: 19960716, end: 20011015
  5. NIFEDIPINE [Concomitant]
     Indication: HYPERTENSION
     Route: 065
     Dates: start: 19960716, end: 20011015
  6. PROCARDIA [Concomitant]
     Indication: ANGINA PECTORIS
     Route: 065
     Dates: start: 19960716, end: 20011015
  7. PROCARDIA [Concomitant]
     Indication: HYPERTENSION
     Route: 065
     Dates: start: 19960716, end: 20011015

REACTIONS (2)
  - CARDIAC FAILURE CONGESTIVE [None]
  - CEREBROVASCULAR ACCIDENT [None]
